FAERS Safety Report 6675438-2 (Version None)
Quarter: 2010Q2

REPORT INFORMATION
  Report Type: 
  Country: None (occurrence: None)
  Receive Date: 20100409
  Receipt Date: 20100405
  Transmission Date: 20101027
  Serious: Yes (Life-Threatening, Hospitalization, Disabling, Other)
  Sender: FDA-Public Use
  Company Number: A0812404A

PATIENT
  Age: 51 Year
  Sex: Male

DRUGS (7)
  1. ARIXTRA [Suspect]
     Indication: DEEP VEIN THROMBOSIS
     Route: 058
  2. LOVENOX [Suspect]
     Indication: DEEP VEIN THROMBOSIS
     Dosage: 80MG UNKNOWN
     Route: 065
  3. HEPARIN [Suspect]
     Indication: DEEP VEIN THROMBOSIS
     Route: 065
  4. LUNESTA [Concomitant]
  5. PLAVIX [Concomitant]
  6. DIAZEPAM [Concomitant]
  7. CLARINEX [Concomitant]

REACTIONS (1)
  - ANGIOEDEMA [None]
